FAERS Safety Report 21789418 (Version 1)
Quarter: 2022Q4

REPORT INFORMATION
  Report Type: Spontaneous
  Country: US (occurrence: None)
  Receive Date: 20221227
  Receipt Date: 20221227
  Transmission Date: 20230113
  Serious: Yes (Other)
  Sender: FDA-Public Use
  Company Number: None

PATIENT
  Age: 78 Year
  Sex: Female
  Weight: 72.9 kg

DRUGS (5)
  1. OLMESARTAN [Suspect]
     Active Substance: OLMESARTAN
     Indication: Hypertension
     Dosage: OTHER QUANTITY : 1 TABLET(S);?FREQUENCY : DAILY;?
     Route: 048
     Dates: start: 20221117, end: 20221225
  2. METOPROLOL [Concomitant]
     Active Substance: METOPROLOL
  3. CLONIDINE [Concomitant]
     Active Substance: CLONIDINE
  4. HYDROCHLOROTHIAZIDE [Concomitant]
     Active Substance: HYDROCHLOROTHIAZIDE
  5. LOSARTAN [Concomitant]
     Active Substance: LOSARTAN

REACTIONS (3)
  - Flank pain [None]
  - Pain [None]
  - Urinary tract infection [None]

NARRATIVE: CASE EVENT DATE: 20221218
